APPROVED DRUG PRODUCT: BETAMETHASONE VALERATE
Active Ingredient: BETAMETHASONE VALERATE
Strength: EQ 0.1% BASE
Dosage Form/Route: LOTION;TOPICAL
Application: A071883 | Product #001
Applicant: TEVA PHARMACEUTICALS USA
Approved: Apr 22, 1988 | RLD: No | RS: No | Type: DISCN